FAERS Safety Report 8717512 (Version 8)
Quarter: 2013Q2

REPORT INFORMATION
  Report Type: Spontaneous
  Country: CA (occurrence: CA)
  Receive Date: 20120810
  Receipt Date: 20130416
  Transmission Date: 20140414
  Serious: Yes (Life-Threatening, Hospitalization)
  Sender: FDA-Public Use
  Company Number: CA-JNJFOC-20120803356

PATIENT
  Age: 32 Year
  Sex: Female
  Weight: 52 kg

DRUGS (47)
  1. NORVASC [Concomitant]
     Route: 048
  2. DILAUDID [Concomitant]
     Route: 058
  3. ZOFRAN [Concomitant]
     Route: 042
  4. GRAVOL [Concomitant]
  5. DIMENHYDRINATE [Concomitant]
  6. MINIRIN/DDAVP [Concomitant]
     Route: 042
  7. LASIX [Concomitant]
     Route: 065
  8. MOTILIUM [Concomitant]
     Route: 048
  9. ZOPLICONE [Concomitant]
     Dosage: EVERY NIGHT AS NEEDED
     Route: 048
  10. SENNA [Concomitant]
     Dosage: AT PM
     Route: 048
  11. ATIVAN [Concomitant]
     Dosage: AT PM IF ZOPICLONE NOT WORKS
     Route: 048
  12. LACTULOSE [Concomitant]
     Dosage: 30 ML TWICE  A DAY AS NEEDED
     Route: 048
  13. ARANESP [Concomitant]
     Dosage: 50 MCG 2 WEEKS ON DIALYSIS
     Route: 042
  14. PANTOLOC [Concomitant]
     Route: 042
  15. PENTAMIDINE [Concomitant]
     Dosage: STARTING POD
     Route: 055
  16. SALBUTAMOL [Concomitant]
     Dosage: 100 MCG 2 PUFFS 15 MINS PRIOR TO PENTAMIDINE AEROSOL
     Route: 055
  17. TYLENOL [Suspect]
     Indication: ABDOMINAL PAIN UPPER
     Dosage: 650 MG TABLETS CRUSHED AND INJECTED IN A 10 ML SYRINGE
     Route: 042
     Dates: start: 20110527, end: 20110527
  18. TYLENOL [Suspect]
     Indication: RENAL TRANSPLANT
     Dosage: 650 MG TABLETS CRUSHED AND INJECTED IN A 10 ML SYRINGE
     Route: 042
     Dates: start: 20110527, end: 20110527
  19. MAALOX /00091001/ [Suspect]
     Indication: PRODUCT USED FOR UNKNOWN INDICATION
     Route: 042
     Dates: start: 20110527
  20. SYNTHROID [Concomitant]
     Route: 048
  21. REPLAVITE [Concomitant]
     Route: 048
  22. VITAMIN D [Concomitant]
     Route: 048
  23. CALCIUM CARBONATE [Concomitant]
     Route: 048
  24. CALCIUM CARBONATE [Concomitant]
     Route: 048
  25. PREDNISONE [Concomitant]
     Route: 048
  26. HEPARIN [Concomitant]
     Route: 042
  27. INFED [Concomitant]
     Route: 042
  28. BASILIXIMAB [Concomitant]
     Route: 042
  29. METHYLPREDNISOLONE [Concomitant]
     Route: 042
  30. CEFAZOLIN [Concomitant]
     Route: 042
  31. TACROLIMUS [Concomitant]
     Route: 048
  32. MYCOPHENOLATE MOFETIL [Concomitant]
     Route: 048
  33. MYCOPHENOLATE MOFETIL [Concomitant]
     Route: 048
     Dates: start: 20110526
  34. VALGANCICLOVIR [Concomitant]
     Route: 048
  35. RANITIDINE [Concomitant]
     Route: 048
  36. RANITIDINE [Concomitant]
     Route: 048
  37. COLACE [Concomitant]
     Route: 048
  38. TRANEXAMIC ACID [Concomitant]
     Route: 042
  39. VITAMIN K [Concomitant]
     Route: 042
  40. SOLUMEDROL (METHYLPREDNISOLONE SODIUM SUCCINATE) [Concomitant]
     Route: 065
  41. ZANTAC [Concomitant]
     Route: 042
  42. ZANTAC [Concomitant]
     Route: 042
  43. CELLCEPT [Concomitant]
     Route: 042
  44. CELLCEPT [Concomitant]
     Route: 042
  45. ACYCLOVIR [Concomitant]
     Route: 048
  46. ACYCLOVIR [Concomitant]
     Route: 048
  47. MYCOPHENOLATE [Concomitant]
     Route: 042

REACTIONS (18)
  - Removal of renal transplant [Unknown]
  - Abscess [Unknown]
  - Haematoma [Unknown]
  - Blood pressure increased [Unknown]
  - Vision blurred [Unknown]
  - Hallucination [Unknown]
  - Pain [Unknown]
  - Haemorrhage [Unknown]
  - Toxicity to various agents [Unknown]
  - Urine output decreased [Recovering/Resolving]
  - Liver function test abnormal [Recovering/Resolving]
  - Complications of transplanted kidney [Unknown]
  - Device related infection [Unknown]
  - Haemoglobin decreased [Unknown]
  - Platelet count decreased [Unknown]
  - Thrombocytopenic purpura [Unknown]
  - Wrong technique in drug usage process [Unknown]
  - Incorrect route of drug administration [Unknown]
